FAERS Safety Report 5698817-9 (Version None)
Quarter: 2008Q2

REPORT INFORMATION
  Report Type: 
  Country: None (occurrence: None)
  Receive Date: 20080404
  Receipt Date: 20080402
  Transmission Date: 20081010
  Serious: Yes (Life-Threatening, Hospitalization)
  Sender: FDA-Public Use
  Company Number: TCI2008A00294

PATIENT
  Age: 77 Year
  Sex: Male

DRUGS (3)
  1. LANSOPRAZOLE [Suspect]
     Indication: UPPER GASTROINTESTINAL HAEMORRHAGE
     Dosage: 60 MG (30 MG, 2 IN 1 D) INTRAVENOUS
     Route: 042
     Dates: start: 20080112, end: 20080117
  2. KAYTWO N (MENATETRENONE) (INJECTION) [Suspect]
     Indication: COAGULOPATHY
     Dosage: 10 MG (10 MG, 1 IN 1 D) INJECTION; 20 MG (10 MG, 2 IN 1 D) INJECTION
     Dates: start: 20080112, end: 20080119
  3. KAYTWO N (MENATETRENONE) (INJECTION) [Suspect]
     Indication: COAGULOPATHY
     Dosage: 10 MG (10 MG, 1 IN 1 D) INJECTION; 20 MG (10 MG, 2 IN 1 D) INJECTION
     Dates: start: 20080120

REACTIONS (4)
  - BLOOD CREATININE INCREASED [None]
  - DEHYDRATION [None]
  - RENAL IMPAIRMENT [None]
  - URINE OUTPUT DECREASED [None]
